FAERS Safety Report 13532082 (Version 1)
Quarter: 2017Q2

REPORT INFORMATION
  Report Type: Spontaneous
  Country: US (occurrence: US)
  Receive Date: 20170510
  Receipt Date: 20170510
  Transmission Date: 20170830
  Serious: No
  Sender: FDA-Public Use
  Company Number: US-GLAXOSMITHKLINE-US2017064400

PATIENT
  Sex: Male

DRUGS (1)
  1. FLONASE SENSIMIST ALLERGY RELIEF [Suspect]
     Active Substance: FLUTICASONE FUROATE
     Indication: HYPERSENSITIVITY
     Dosage: UNK
     Dates: start: 20170429, end: 20170429

REACTIONS (12)
  - Emergency care examination [Not Recovered/Not Resolved]
  - Laryngitis [Recovered/Resolved]
  - Nasal discomfort [Recovering/Resolving]
  - Aphonia [Unknown]
  - Hypersensitivity [Not Recovered/Not Resolved]
  - Upper respiratory tract infection [Unknown]
  - Adverse event [Unknown]
  - Body temperature increased [Unknown]
  - Facial pain [Unknown]
  - Productive cough [Not Recovered/Not Resolved]
  - Headache [Unknown]
  - Cough [Unknown]

NARRATIVE: CASE EVENT DATE: 20170429
